FAERS Safety Report 8591665-1 (Version None)
Quarter: 2012Q3

REPORT INFORMATION
  Report Type: 
  Country: None (occurrence: None)
  Receive Date: 20120814
  Receipt Date: 20120807
  Transmission Date: 20120928
  Serious: Yes (Death)
  Sender: FDA-Public Use
  Company Number: JP-CELGENEUS-087-50794-12081039

PATIENT
  Sex: Female
  Weight: 41 kg

DRUGS (22)
  1. CONIEL [Concomitant]
     Route: 065
     Dates: start: 20120118, end: 20120324
  2. VANCOMYCIN [Concomitant]
     Route: 065
     Dates: start: 20120223, end: 20120228
  3. MAGMITT [Concomitant]
     Route: 065
     Dates: start: 20120118, end: 20120324
  4. GRAN [Concomitant]
     Route: 065
     Dates: start: 20120207, end: 20120328
  5. MEROPENEM [Concomitant]
     Route: 065
     Dates: start: 20120207, end: 20120319
  6. AMBISOME [Concomitant]
     Route: 065
     Dates: start: 20120107
  7. BISOPROLOL FUMARATE [Concomitant]
     Route: 065
     Dates: start: 20120118, end: 20120324
  8. GRANISETRON HYDROCHLORIDE [Concomitant]
     Route: 065
     Dates: start: 20111208, end: 20111214
  9. GRAN [Concomitant]
     Route: 065
     Dates: start: 20111224, end: 20111225
  10. VIDAZA [Suspect]
     Dosage: 75 MILLIGRAM/SQ. METER
     Route: 058
     Dates: start: 20120301, end: 20120307
  11. SOLU-CORTEF [Concomitant]
     Route: 065
     Dates: start: 20120207, end: 20120328
  12. MYSER [Concomitant]
     Route: 065
     Dates: start: 20120308, end: 20120315
  13. MEROPENEM [Concomitant]
     Route: 065
     Dates: start: 20120322, end: 20120328
  14. VIDAZA [Suspect]
     Dosage: 75 MILLIGRAM/SQ. METER
     Route: 058
     Dates: start: 20120105, end: 20120111
  15. TORACONA [Concomitant]
     Route: 065
     Dates: start: 20111219, end: 20120114
  16. CIPROFLOXACIN HCL [Concomitant]
     Route: 065
     Dates: start: 20120318, end: 20120319
  17. VIDAZA [Suspect]
     Dosage: 75 MILLIGRAM/SQ. METER
     Route: 058
     Dates: start: 20120202, end: 20120208
  18. VIDAZA [Suspect]
     Dosage: 75 MILLIGRAM/SQ. METER
     Route: 058
     Dates: start: 20111208, end: 20111214
  19. AMBISOME [Concomitant]
     Route: 065
     Dates: end: 20120328
  20. LASIX [Concomitant]
     Route: 065
     Dates: start: 20111230, end: 20120109
  21. LANSOPRAZOLE [Concomitant]
     Route: 065
     Dates: start: 20120118, end: 20120324
  22. MEROPENEM [Concomitant]
     Route: 065
     Dates: start: 20111225, end: 20120107

REACTIONS (7)
  - NEUTROPHIL COUNT DECREASED [None]
  - RED BLOOD CELL COUNT DECREASED [None]
  - PLATELET COUNT DECREASED [None]
  - HAEMOGLOBIN DECREASED [None]
  - LYMPHOCYTE COUNT INCREASED [None]
  - MONOCYTE COUNT DECREASED [None]
  - WHITE BLOOD CELL COUNT DECREASED [None]
